FAERS Safety Report 9013093 (Version 1)
Quarter: 2013Q1

REPORT INFORMATION
  Report Type: Spontaneous
  Country: JP (occurrence: JP)
  Receive Date: 20130114
  Receipt Date: 20130114
  Transmission Date: 20140127
  Serious: Yes (Death)
  Sender: FDA-Public Use
  Company Number: JP-ASTELLAS-2013JP000194

PATIENT
  Age: 11 Year
  Sex: Female

DRUGS (1)
  1. FUNGUARD [Suspect]
     Indication: ANTIFUNGAL TREATMENT
     Route: 065

REACTIONS (2)
  - Drug ineffective [Unknown]
  - Systemic mycosis [Fatal]
